FAERS Safety Report 7434966-2 (Version None)
Quarter: 2011Q2

REPORT INFORMATION
  Report Type: 
  Country: None (occurrence: None)
  Receive Date: 20110425
  Receipt Date: 20110420
  Transmission Date: 20111010
  Serious: Yes (Hospitalization)
  Sender: FDA-Public Use
  Company Number: FR-ROCHE-772674

PATIENT
  Sex: Female

DRUGS (11)
  1. PREVISCAN [Interacting]
     Route: 048
     Dates: end: 20110316
  2. FOSAVANCE [Concomitant]
     Route: 048
  3. AVLOCARDYL [Concomitant]
     Route: 048
  4. CORTANCYL [Concomitant]
     Route: 048
  5. ROCEPHIN [Suspect]
     Indication: LUNG INFECTION
     Route: 042
     Dates: start: 20110315, end: 20110316
  6. LANTUS [Concomitant]
     Route: 058
  7. LERCAN [Concomitant]
     Route: 048
  8. SEROPLEX [Interacting]
     Route: 048
  9. APROVEL [Concomitant]
     Route: 048
  10. HUMALOG [Concomitant]
     Route: 058
  11. MOPRAL [Concomitant]
     Route: 048

REACTIONS (2)
  - DRUG INTERACTION [None]
  - GASTROINTESTINAL HAEMORRHAGE [None]
